FAERS Safety Report 7710243-7 (Version None)
Quarter: 2011Q3

REPORT INFORMATION
  Report Type: 
  Country: None (occurrence: None)
  Receive Date: 20110825
  Receipt Date: 20110823
  Transmission Date: 20111222
  Serious: Yes (Hospitalization)
  Sender: FDA-Public Use
  Company Number: JP-GENZYME-RENA-1001276

PATIENT
  Sex: Female
  Weight: 65 kg

DRUGS (11)
  1. RENAGEL [Suspect]
     Dosage: 1.75 G, TID
     Route: 048
     Dates: start: 20081125, end: 20110607
  2. RENAGEL [Suspect]
     Indication: HYPERPHOSPHATAEMIA
     Dosage: 0.25 G, TID
     Route: 048
     Dates: start: 20040930, end: 20050808
  3. RENAGEL [Suspect]
     Dosage: 1.5 G, TID
     Route: 048
     Dates: start: 20080708, end: 20081124
  4. RENAGEL [Suspect]
     Dosage: 1.0 G, TID
     Route: 048
     Dates: start: 20080124, end: 20080317
  5. RENAGEL [Suspect]
     Dosage: 1.25 G, TID
     Route: 048
     Dates: start: 20080318, end: 20080707
  6. ALLOPURINOL [Concomitant]
     Indication: PRODUCT USED FOR UNKNOWN INDICATION
     Dosage: UNK
     Route: 065
     Dates: start: 20011201
  7. HYPOCA [Concomitant]
     Indication: PRODUCT USED FOR UNKNOWN INDICATION
     Dosage: UNK
     Route: 065
     Dates: start: 20011201
  8. RENAGEL [Suspect]
     Dosage: 0.5 G, TID
     Route: 048
     Dates: start: 20050809, end: 20051114
  9. RENAGEL [Suspect]
     Dosage: 0.75 G, TID
     Route: 048
     Dates: start: 20051115, end: 20080123
  10. RENAGEL [Suspect]
     Dosage: 1.6 G, TID
     Route: 048
     Dates: start: 20110608, end: 20110719
  11. KALIMATE [Concomitant]
     Indication: PRODUCT USED FOR UNKNOWN INDICATION
     Dosage: UNK
     Route: 065
     Dates: start: 20011201, end: 20110719

REACTIONS (4)
  - RECTAL ULCER [None]
  - PROCTALGIA [None]
  - DYSCHEZIA [None]
  - MELAENA [None]
